FAERS Safety Report 4647743-2 (Version None)
Quarter: 2005Q2

REPORT INFORMATION
  Report Type: 
  Country: None (occurrence: None)
  Receive Date: 20050426
  Receipt Date: 20050411
  Transmission Date: 20051028
  Serious: Yes (Other)
  Sender: FDA-Public Use
  Company Number: 2005058744

PATIENT
  Age: 58 Year
  Sex: Male

DRUGS (1)
  1. BEXTRA [Suspect]
     Indication: POST PROCEDURAL PAIN
     Dosage: 40 MG ORAL
     Route: 048
     Dates: start: 20050123

REACTIONS (1)
  - PRURITUS [None]
